FAERS Safety Report 23769109 (Version 2)
Quarter: 2024Q2

REPORT INFORMATION
  Report Type: Spontaneous
  Country: AU (occurrence: AU)
  Receive Date: 20240422
  Receipt Date: 20240528
  Transmission Date: 20240715
  Serious: Yes (Other)
  Sender: FDA-Public Use
  Company Number: AU-MYLANLABS-2024M1027042

PATIENT
  Age: 30 Year
  Sex: Male

DRUGS (1)
  1. CLOZARIL [Suspect]
     Active Substance: CLOZAPINE
     Indication: Schizophrenia
     Dosage: 300 MILLIGRAM, QD
     Route: 048
     Dates: start: 20210708, end: 2021

REACTIONS (2)
  - Myocarditis [Recovering/Resolving]
  - Antipsychotic drug level increased [Unknown]

NARRATIVE: CASE EVENT DATE: 20210927
